FAERS Safety Report 6159786-0 (Version None)
Quarter: 2009Q2

REPORT INFORMATION
  Report Type: 
  Country: None (occurrence: None)
  Receive Date: 20090420
  Receipt Date: 20090409
  Transmission Date: 20091009
  Serious: Yes (Life-Threatening, Hospitalization)
  Sender: FDA-Public Use
  Company Number: US-ELI_LILLY_AND_COMPANY-US200903001109

PATIENT
  Sex: Female
  Weight: 58.957 kg

DRUGS (16)
  1. CYMBALTA [Suspect]
     Indication: DEPRESSION
     Dosage: 60 MG, DAILY (1/D)
     Route: 048
     Dates: start: 20080301
  2. CYMBALTA [Suspect]
     Dosage: 90 MG, DAILY (1/D)
     Route: 048
     Dates: end: 20090101
  3. CYMBALTA [Suspect]
     Dosage: 120 MG, DAILY (1/D)
     Route: 048
     Dates: start: 20090101, end: 20090208
  4. CYMBALTA [Suspect]
     Dosage: 90 MG, EACH EVENING
     Route: 048
     Dates: start: 20090209
  5. CYMBALTA [Suspect]
     Dosage: 60 MG, DAILY (1/D)
     Dates: start: 20090201
  6. PROZAC [Suspect]
     Indication: DEPRESSION
     Dosage: 40 MG, UNK
     Dates: start: 20070601
  7. PROZAC [Suspect]
     Dosage: 80 MG, DAILY (1/D)
  8. PROZAC [Suspect]
     Dosage: 90 MG, DAILY (1/D)
  9. ABILIFY [Concomitant]
     Indication: MOOD ALTERED
     Dosage: 10 MG, UNK
  10. ABILIFY [Concomitant]
     Dosage: 7.5 MG, UNK
  11. ANTIHISTAMINES [Concomitant]
  12. CAFFEINE [Concomitant]
     Dosage: 80 G, OTHER
     Route: 048
  13. XOPENEX HFA [Concomitant]
     Dosage: UNK, AS NEEDED
     Route: 055
  14. XYZAL [Concomitant]
     Dosage: 5 MG, AS NEEDED
  15. VITAMIN D [Concomitant]
     Dosage: 1000 IU, DAILY (1/D)
  16. ESCITALOPRAM [Concomitant]

REACTIONS (13)
  - AFFECT LABILITY [None]
  - AKATHISIA [None]
  - ALCOHOL ABUSE [None]
  - DEPRESSION [None]
  - DRUG INEFFECTIVE [None]
  - FLAT AFFECT [None]
  - IMPULSIVE BEHAVIOUR [None]
  - PANIC ATTACK [None]
  - RESTLESSNESS [None]
  - SUICIDAL IDEATION [None]
  - SUICIDE ATTEMPT [None]
  - TREMOR [None]
  - VOMITING [None]
